FAERS Safety Report 25295205 (Version 2)
Quarter: 2025Q2

REPORT INFORMATION
  Report Type: Spontaneous
  Country: US (occurrence: US)
  Receive Date: 20250511
  Receipt Date: 20250513
  Transmission Date: 20250716
  Serious: No
  Sender: SANOFI AVENTIS
  Company Number: US-SA-2025SA129166

PATIENT
  Age: 63 Year
  Sex: Female

DRUGS (11)
  1. DUPIXENT [Suspect]
     Active Substance: DUPILUMAB
     Indication: Asthma
     Dosage: 300 MG, QOW
     Route: 058
     Dates: start: 20250304
  2. FLUOXETINE HYDROCHLORIDE [Concomitant]
     Active Substance: FLUOXETINE HYDROCHLORIDE
  3. GABAPENTIN [Concomitant]
     Active Substance: GABAPENTIN
  4. LAMOTRIGINE [Concomitant]
     Active Substance: LAMOTRIGINE
  5. LORAZEPAM [Concomitant]
     Active Substance: LORAZEPAM
  6. LOSARTAN POTASSIUM [Concomitant]
     Active Substance: LOSARTAN POTASSIUM
  7. PROPRANOLOL [Concomitant]
     Active Substance: PROPRANOLOL HYDROCHLORIDE
  8. QUETIAPINE FUMARATE [Concomitant]
     Active Substance: QUETIAPINE FUMARATE
  9. ROSUVASTATIN [Concomitant]
     Active Substance: ROSUVASTATIN
  10. TIZANIDINE HYDROCHLORIDE [Concomitant]
     Active Substance: TIZANIDINE HYDROCHLORIDE
  11. NITROGLYCERIN [Concomitant]
     Active Substance: NITROGLYCERIN

REACTIONS (3)
  - Fall [Not Recovered/Not Resolved]
  - Rib fracture [Not Recovered/Not Resolved]
  - Tremor [Not Recovered/Not Resolved]
